FAERS Safety Report 4911926-4 (Version None)
Quarter: 2006Q1

REPORT INFORMATION
  Report Type: 
  Country: None (occurrence: None)
  Receive Date: 20060215
  Receipt Date: 20060203
  Transmission Date: 20060701
  Serious: Yes (Other)
  Sender: FDA-Public Use
  Company Number: PHBS2006BR01993

PATIENT
  Age: 42 Year
  Sex: Male

DRUGS (1)
  1. CODATEN [Suspect]
     Indication: CANCER PAIN
     Route: 048
     Dates: start: 20040201

REACTIONS (1)
  - DRUG DEPENDENCE [None]
